FAERS Safety Report 7307804-6 (Version None)
Quarter: 2011Q1

REPORT INFORMATION
  Report Type: 
  Country: None (occurrence: None)
  Receive Date: 20110223
  Receipt Date: 20110215
  Transmission Date: 20110831
  Serious: Yes (Other)
  Sender: FDA-Public Use
  Company Number: US-PFIZER INC-2010118695

PATIENT
  Sex: Female
  Weight: 50.34 kg

DRUGS (2)
  1. LYRICA [Suspect]
     Indication: EPILEPSY
     Dosage: 75 MG, 2X/DAY
     Route: 048
     Dates: start: 20100903
  2. LYRICA [Suspect]
     Indication: CONVULSION

REACTIONS (5)
  - CONVULSION [None]
  - BLOOD COUNT ABNORMAL [None]
  - CONTUSION [None]
  - HAEMORRHAGE [None]
  - OEDEMA PERIPHERAL [None]
